FAERS Safety Report 16037792 (Version 5)
Quarter: 2019Q3

REPORT INFORMATION
  Report Type: Report from Study
  Country: DE (occurrence: DE)
  Receive Date: 20190305
  Receipt Date: 20190819
  Transmission Date: 20191004
  Serious: Yes (Hospitalization)
  Sender: FDA-Public Use
  Company Number: DE-PFIZER INC-2017554583

PATIENT
  Age: 61 Year
  Sex: Female
  Weight: 67 kg

DRUGS (5)
  1. ULTIBRO BREEZHALER [Concomitant]
     Active Substance: GLYCOPYRRONIUM\INDACATEROL
     Indication: HYPOVENTILATION
     Dosage: UNK
     Route: 055
     Dates: start: 20170715
  2. DOCETAXEL. [Suspect]
     Active Substance: DOCETAXEL
     Indication: LUNG ADENOCARCINOMA
     Dosage: 75 MG/M2, 1X/DAY
     Route: 042
     Dates: start: 20170418, end: 20180818
  3. VARGATEF [Suspect]
     Active Substance: NINTEDANIB
     Indication: LUNG ADENOCARCINOMA
     Dosage: 400 MG, 1X/DAY
     Route: 048
     Dates: start: 20170419
  4. VARGATEF [Suspect]
     Active Substance: NINTEDANIB
     Dosage: 400 MG, 1X/DAY
     Route: 048
  5. VARGATEF [Suspect]
     Active Substance: NINTEDANIB
     Dosage: 200 MG, 1X/DAY
     Route: 048

REACTIONS (16)
  - White blood cell count decreased [Recovered/Resolved]
  - Urinary tract infection [Recovered/Resolved]
  - Mucosal infection [Recovered/Resolved]
  - Personality change [Recovered/Resolved]
  - Dysuria [Not Recovered/Not Resolved]
  - Lung infection [Recovered/Resolved]
  - Hypothyroidism [Not Recovered/Not Resolved]
  - Urinary retention [Recovered/Resolved]
  - Embolism [Recovered/Resolved]
  - Neutrophil count decreased [Recovered/Resolved]
  - General physical health deterioration [Recovered/Resolved]
  - Venous thrombosis [Recovered/Resolved]
  - Hypoventilation [Not Recovered/Not Resolved]
  - White blood cell count decreased [Recovered/Resolved]
  - Chills [Recovered/Resolved]
  - Lymphocyte count decreased [Recovered/Resolved]

NARRATIVE: CASE EVENT DATE: 20170418
